FAERS Safety Report 16202714 (Version 1)
Quarter: 2019Q2

REPORT INFORMATION
  Report Type: Spontaneous
  Country: US (occurrence: US)
  Receive Date: 20190312
  Receipt Date: 20190312
  Transmission Date: 20190711
  Serious: Yes (Death)
  Sender: FDA-Public Use
  Company Number: None

PATIENT
  Age: 50 Year
  Sex: Female

DRUGS (8)
  1. CURCUMIN [Concomitant]
     Active Substance: CURCUMIN
  2. VITAMIN C [Concomitant]
     Active Substance: ASCORBIC ACID
  3. CALCIPOTRIEN [Concomitant]
  4. ZOLPIDEM [Concomitant]
     Active Substance: ZOLPIDEM\ZOLPIDEM TARTRATE
  5. METHYLPHENID [Concomitant]
     Active Substance: METHYLPHENIDATE
  6. VERZENIO [Suspect]
     Active Substance: ABEMACICLIB
     Indication: METASTATIC NEOPLASM
     Route: 048
     Dates: start: 20180629, end: 20190304
  7. VERZENIO [Suspect]
     Active Substance: ABEMACICLIB
  8. VITAMIN D3 [Concomitant]
     Active Substance: CHOLECALCIFEROL

REACTIONS (1)
  - Death [None]
